FAERS Safety Report 6190570-8 (Version None)
Quarter: 2009Q2

REPORT INFORMATION
  Report Type: 
  Country: None (occurrence: None)
  Receive Date: 20090514
  Receipt Date: 20090430
  Transmission Date: 20091009
  Serious: Yes (Other)
  Sender: FDA-Public Use
  Company Number: PL-ROCHE-629404

PATIENT
  Sex: Female

DRUGS (6)
  1. PEG-INTERFERON ALFA 2A (RO 25-8310) [Suspect]
     Route: 058
     Dates: start: 20080924
  2. RIBAVIRIN [Suspect]
     Dosage: THE PATIENT RECEIVED DRUG AT VARIABLE DOSE.
     Route: 048
     Dates: start: 20080924, end: 20081118
  3. RIBAVIRIN [Suspect]
     Route: 048
     Dates: start: 20081119
  4. ELTROMBOPAG [Suspect]
     Indication: THROMBOCYTOPENIA
     Route: 048
     Dates: start: 20080910, end: 20080923
  5. BLINDED ELTROMBOPAG [Suspect]
     Indication: THROMBOCYTOPENIA
     Dosage: VARIABLE DOSES PER DAY
     Route: 048
     Dates: start: 20080924, end: 20090210
  6. BLINDED ELTROMBOPAG [Suspect]
     Route: 048
     Dates: start: 20090211

REACTIONS (1)
  - ASCITES [None]
